FAERS Safety Report 7178414-9 (Version None)
Quarter: 2010Q4

REPORT INFORMATION
  Report Type: 
  Country: None (occurrence: None)
  Receive Date: 20101220
  Receipt Date: 20101210
  Transmission Date: 20110411
  Serious: Yes (Other)
  Sender: FDA-Public Use
  Company Number: JP-ASTRAZENECA-2010SE49845

PATIENT
  Age: 26 Year
  Sex: Female

DRUGS (7)
  1. SEROQUEL [Suspect]
     Indication: DEPRESSION
     Route: 048
     Dates: start: 20090525, end: 20101014
  2. SEROQUEL [Suspect]
     Indication: INSOMNIA
     Route: 048
     Dates: start: 20090525, end: 20101014
  3. TETRAMIDE [Concomitant]
     Indication: INSOMNIA
  4. SERTRALINE HYDROCHLORIDE [Concomitant]
     Indication: BULIMIA NERVOSA
     Dates: start: 20091022
  5. SERTRALINE HYDROCHLORIDE [Concomitant]
     Indication: DEPRESSION
     Dates: start: 20091022
  6. RHYTHMY [Concomitant]
     Indication: INSOMNIA
     Dates: start: 20090525
  7. AMOBAN [Concomitant]
     Indication: INSOMNIA

REACTIONS (2)
  - CONVULSION [None]
  - LOSS OF CONSCIOUSNESS [None]
